FAERS Safety Report 9576450 (Version 1)
Quarter: 2013Q4

REPORT INFORMATION
  Report Type: Spontaneous
  Country: US (occurrence: US)
  Receive Date: 20131001
  Receipt Date: 20131001
  Transmission Date: 20140711
  Serious: No
  Sender: FDA-Public Use
  Company Number: US-AMGEN-USASP2013003169

PATIENT
  Age: 65 Year
  Sex: Male
  Weight: 89.8 kg

DRUGS (2)
  1. ENBREL [Suspect]
     Indication: PSORIASIS
     Dosage: 50 MG, 2 TIMES/WK
     Route: 058
  2. ATENOLOL [Concomitant]
     Dosage: 50 MG, UNK

REACTIONS (6)
  - Skin haemorrhage [Unknown]
  - Laceration [Unknown]
  - Increased tendency to bruise [Unknown]
  - Injection site erythema [Unknown]
  - Injection site warmth [Unknown]
  - Injection site pain [Unknown]
